FAERS Safety Report 8933553 (Version 1)
Quarter: 2012Q4

REPORT INFORMATION
  Report Type: 
  Country: US (occurrence: US)
  Receive Date: 20121129
  Receipt Date: 20121129
  Transmission Date: 20130627
  Serious: Yes (Hospitalization)
  Sender: FDA-Public Use
  Company Number: US-PFIZER INC-2012299064

PATIENT
  Age: 74 Year
  Sex: Male
  Weight: 81 kg

DRUGS (6)
  1. ATORVASTATIN CALCIUM [Suspect]
     Indication: HIGH CHOLESTEROL
     Dosage: 20 mg, daily
     Dates: end: 20121125
  2. NORVASC [Concomitant]
     Indication: BLOOD PRESSURE HIGH
     Dosage: 10 mg, 2x/day
  3. NORVASC [Concomitant]
     Dosage: 10 mg, daily
  4. NIASPAN [Concomitant]
     Indication: BLOOD PRESSURE HIGH
     Dosage: 1000 mg, daily
  5. PLAVIX [Concomitant]
     Indication: BLOOD PRESSURE HIGH
     Dosage: 75 mg, daily
  6. ACCUPRIL [Concomitant]
     Indication: BLOOD PRESSURE HIGH
     Dosage: 40 mg, daily

REACTIONS (2)
  - Cardiac disorder [Unknown]
  - Drug ineffective [Unknown]
